FAERS Safety Report 7920217-9 (Version None)
Quarter: 2011Q4

REPORT INFORMATION
  Report Type: 
  Country: None (occurrence: None)
  Receive Date: 20111115
  Receipt Date: 20111107
  Transmission Date: 20120403
  Serious: Yes (Hospitalization)
  Sender: FDA-Public Use
  Company Number: 2011SP009882

PATIENT
  Age: 20 Year
  Sex: Male

DRUGS (2)
  1. REMERON [Suspect]
     Indication: DEPRESSION
     Dosage: 15 MG;PO
     Route: 048
     Dates: start: 20110208, end: 20110225
  2. REMERON [Suspect]
     Indication: SOCIAL PHOBIA
     Dosage: 15 MG;PO
     Route: 048
     Dates: start: 20110208, end: 20110225

REACTIONS (8)
  - SELF INJURIOUS BEHAVIOUR [None]
  - AGITATION [None]
  - FEAR [None]
  - IRRITABILITY [None]
  - TENSION [None]
  - DYSTHYMIC DISORDER [None]
  - ANXIETY [None]
  - PALPITATIONS [None]
